APPROVED DRUG PRODUCT: ARICEPT ODT
Active Ingredient: DONEPEZIL HYDROCHLORIDE
Strength: 5MG
Dosage Form/Route: TABLET, ORALLY DISINTEGRATING;ORAL
Application: N021720 | Product #001
Applicant: EISAI INC
Approved: Oct 18, 2004 | RLD: Yes | RS: No | Type: DISCN